FAERS Safety Report 7027408-2 (Version None)
Quarter: 2010Q4

REPORT INFORMATION
  Report Type: 
  Country: None (occurrence: None)
  Receive Date: 20101004
  Receipt Date: 20100820
  Transmission Date: 20110411
  Serious: Yes (Death, Other)
  Sender: FDA-Public Use
  Company Number: US-BAXTER-2009BH016740

PATIENT
  Age: 64 Year
  Sex: Male

DRUGS (56)
  1. HEPARIN SODIUM INJECTION [Suspect]
     Indication: THROMBOSIS PROPHYLAXIS
     Route: 058
     Dates: start: 20080219, end: 20080225
  2. HEPARIN SODIUM INJECTION [Suspect]
     Indication: ANTICOAGULANT THERAPY
     Route: 058
     Dates: start: 20080219, end: 20080225
  3. HEPARIN SODIUM INJECTION [Suspect]
     Indication: ACUTE MYOCARDIAL INFARCTION
     Route: 058
     Dates: start: 20080219, end: 20080225
  4. HEPARIN SODIUM INJECTION [Suspect]
     Route: 040
     Dates: start: 20080225, end: 20080225
  5. HEPARIN SODIUM INJECTION [Suspect]
     Route: 040
     Dates: start: 20080225, end: 20080225
  6. HEPARIN SODIUM INJECTION [Suspect]
     Route: 040
     Dates: start: 20080225, end: 20080225
  7. HEPARIN SODIUM INJECTION [Suspect]
     Route: 040
     Dates: start: 20080125, end: 20080130
  8. HEPARIN SODIUM INJECTION [Suspect]
     Route: 040
     Dates: start: 20080125, end: 20080130
  9. HEPARIN SODIUM INJECTION [Suspect]
     Route: 040
     Dates: start: 20080125, end: 20080130
  10. HEPARIN SODIUM INJECTION [Suspect]
     Route: 058
     Dates: start: 20080226, end: 20080325
  11. HEPARIN SODIUM INJECTION [Suspect]
     Route: 058
     Dates: start: 20080226, end: 20080325
  12. HEPARIN SODIUM INJECTION [Suspect]
     Route: 058
     Dates: start: 20080226, end: 20080325
  13. HEPARIN SODIUM INJECTION [Suspect]
     Route: 040
     Dates: start: 20080130, end: 20080220
  14. HEPARIN SODIUM INJECTION [Suspect]
     Route: 040
     Dates: start: 20080130, end: 20080220
  15. HEPARIN SODIUM INJECTION [Suspect]
     Route: 040
     Dates: start: 20080130, end: 20080220
  16. HEPARIN SODIUM INJECTION [Suspect]
     Route: 040
     Dates: start: 20080226, end: 20080325
  17. HEPARIN SODIUM INJECTION [Suspect]
     Route: 040
     Dates: start: 20080226, end: 20080325
  18. HEPARIN SODIUM INJECTION [Suspect]
     Route: 040
     Dates: start: 20080226, end: 20080325
  19. HEPARIN SODIUM INJECTION [Suspect]
     Route: 058
     Dates: start: 20080201, end: 20080201
  20. HEPARIN SODIUM INJECTION [Suspect]
     Route: 058
     Dates: start: 20080201, end: 20080201
  21. HEPARIN SODIUM INJECTION [Suspect]
     Route: 058
     Dates: start: 20080201, end: 20080201
  22. HEPARIN SODIUM INJECTION [Suspect]
     Route: 040
     Dates: start: 20080220, end: 20080101
  23. HEPARIN SODIUM INJECTION [Suspect]
     Route: 040
     Dates: start: 20080220, end: 20080101
  24. HEPARIN SODIUM INJECTION [Suspect]
     Route: 040
     Dates: start: 20080220, end: 20080101
  25. LOVENOX [Suspect]
     Indication: PRODUCT USED FOR UNKNOWN INDICATION
     Route: 065
     Dates: start: 20080201
  26. LEVOTHYROXINE SODIUM [Concomitant]
     Indication: PRODUCT USED FOR UNKNOWN INDICATION
     Route: 065
  27. OXYCODONE [Concomitant]
     Indication: PRODUCT USED FOR UNKNOWN INDICATION
     Route: 065
  28. ALLOPURINOL [Concomitant]
     Indication: PRODUCT USED FOR UNKNOWN INDICATION
     Route: 065
  29. ATENOLOL [Concomitant]
     Indication: PRODUCT USED FOR UNKNOWN INDICATION
     Route: 065
  30. GLIPIZIDE [Concomitant]
     Indication: PRODUCT USED FOR UNKNOWN INDICATION
     Route: 065
  31. INDOMETHACIN [Concomitant]
     Indication: PRODUCT USED FOR UNKNOWN INDICATION
     Route: 065
  32. LANTUS [Concomitant]
     Indication: PRODUCT USED FOR UNKNOWN INDICATION
     Route: 065
  33. GABAPENTIN [Concomitant]
     Indication: PRODUCT USED FOR UNKNOWN INDICATION
     Route: 065
  34. METOCLOPRAMIDE HYDROCHLORIDE [Concomitant]
     Indication: PRODUCT USED FOR UNKNOWN INDICATION
     Route: 065
  35. OMEPRAZOLE [Concomitant]
     Indication: PRODUCT USED FOR UNKNOWN INDICATION
     Route: 065
  36. SIMVASTATIN [Concomitant]
     Indication: PRODUCT USED FOR UNKNOWN INDICATION
     Route: 065
  37. METHADONE [Concomitant]
     Indication: PRODUCT USED FOR UNKNOWN INDICATION
     Route: 065
  38. NOVOLOG [Concomitant]
     Indication: PRODUCT USED FOR UNKNOWN INDICATION
     Route: 065
  39. BUPROPION [Concomitant]
     Indication: PRODUCT USED FOR UNKNOWN INDICATION
     Route: 065
  40. SENNA-GEN [Concomitant]
     Indication: PRODUCT USED FOR UNKNOWN INDICATION
     Route: 065
  41. FUROSEMIDE [Concomitant]
     Indication: PRODUCT USED FOR UNKNOWN INDICATION
     Route: 065
  42. ACTOS [Concomitant]
     Indication: PRODUCT USED FOR UNKNOWN INDICATION
     Route: 065
  43. NITROGLYCERIN ^PHARMACIA + UPJOHN^ [Concomitant]
     Indication: PRODUCT USED FOR UNKNOWN INDICATION
     Route: 065
  44. MECLIZINE HYDROCHLORIDE [Concomitant]
     Indication: PRODUCT USED FOR UNKNOWN INDICATION
     Route: 065
  45. TYLENOL [Concomitant]
     Indication: PRODUCT USED FOR UNKNOWN INDICATION
     Route: 065
  46. ASPIRIN [Concomitant]
     Indication: PRODUCT USED FOR UNKNOWN INDICATION
     Route: 065
  47. GAS RELIEF [Concomitant]
     Indication: PRODUCT USED FOR UNKNOWN INDICATION
     Route: 065
  48. ALBUTEROL SULFATE [Concomitant]
     Indication: PRODUCT USED FOR UNKNOWN INDICATION
     Route: 065
  49. IPRATROPIUM BROMIDE [Concomitant]
     Indication: PRODUCT USED FOR UNKNOWN INDICATION
     Route: 065
  50. LEVITRA [Concomitant]
     Indication: PRODUCT USED FOR UNKNOWN INDICATION
     Route: 048
  51. VENOFER [Concomitant]
     Indication: PRODUCT USED FOR UNKNOWN INDICATION
     Route: 042
  52. EPOGEN [Concomitant]
     Indication: PRODUCT USED FOR UNKNOWN INDICATION
     Route: 058
  53. DEXTROSE [Concomitant]
     Indication: HYPOGLYCAEMIA
     Route: 048
  54. COLACE [Concomitant]
     Indication: PRODUCT USED FOR UNKNOWN INDICATION
     Route: 065
  55. PROCRIT [Concomitant]
     Indication: PRODUCT USED FOR UNKNOWN INDICATION
     Route: 065
  56. RESTORIL [Concomitant]
     Indication: PRODUCT USED FOR UNKNOWN INDICATION
     Route: 065

REACTIONS (24)
  - ACUTE MYOCARDIAL INFARCTION [None]
  - ANAEMIA [None]
  - ASTHENIA [None]
  - CHEST PAIN [None]
  - CONGENITAL CYSTIC KIDNEY DISEASE [None]
  - CORONARY ARTERY DISEASE [None]
  - DECREASED APPETITE [None]
  - DECUBITUS ULCER [None]
  - DIABETES MELLITUS [None]
  - DYSPNOEA [None]
  - FLUID OVERLOAD [None]
  - HYPERSENSITIVITY [None]
  - HYPOTENSION [None]
  - MEDIASTINUM NEOPLASM [None]
  - NAUSEA [None]
  - PAIN IN EXTREMITY [None]
  - PLEURAL EFFUSION [None]
  - PNEUMONIA STAPHYLOCOCCAL [None]
  - PULMONARY OEDEMA [None]
  - RENAL FAILURE CHRONIC [None]
  - RESPIRATORY FAILURE [None]
  - SEPTIC SHOCK [None]
  - UNRESPONSIVE TO STIMULI [None]
  - VOMITING [None]
